FAERS Safety Report 20118026 (Version 1)
Quarter: 2021Q4

REPORT INFORMATION
  Report Type: Report from Study
  Country: CA (occurrence: CA)
  Receive Date: 20211126
  Receipt Date: 20211126
  Transmission Date: 20220303
  Serious: Yes (Other)
  Sender: FDA-Public Use
  Company Number: CA-JNJFOC-20211115197

PATIENT
  Age: 63 Year
  Sex: Male
  Weight: 70 kg

DRUGS (2)
  1. REMICADE [Suspect]
     Active Substance: INFLIXIMAB
     Indication: Crohn^s disease
     Dosage: PATIENT WAS RECEIVED TREATMENT ON 10-NOV-2021
     Route: 042
     Dates: start: 20100825
  2. REMICADE [Suspect]
     Active Substance: INFLIXIMAB
     Dosage: PATIENT HAD REMICADE DOE OF 10 MG/KG AT 0, 2 AND 4
     Route: 042

REACTIONS (2)
  - Inflammatory bowel disease [Unknown]
  - SARS-CoV-2 test positive [Recovered/Resolved]

NARRATIVE: CASE EVENT DATE: 20211104
